FAERS Safety Report 13784403 (Version 1)
Quarter: 2017Q3

REPORT INFORMATION
  Report Type: Spontaneous
  Country: FR (occurrence: FR)
  Receive Date: 20170724
  Receipt Date: 20170724
  Transmission Date: 20171127
  Serious: Yes (Hospitalization, Other)
  Sender: FDA-Public Use
  Company Number: FR-BAXTER-2017BAX028015

PATIENT
  Age: 66 Year
  Sex: Female

DRUGS (21)
  1. UROMITEXAN 5 G/50 ML, SOLUTION INJECTABLE POUR PERFUSION EN FLACON [Suspect]
     Active Substance: MESNA
     Dosage: AT D4
     Route: 065
  2. TRIFLUCAN [Suspect]
     Active Substance: FLUCONAZOLE
     Indication: PRODUCT USED FOR UNKNOWN INDICATION
     Dosage: INTRODUCED A WEEK BEFORE THE EVENT, ONGOING
     Route: 065
  3. KARDEGIC [Suspect]
     Active Substance: ASPIRIN LYSINE
     Indication: PRODUCT USED FOR UNKNOWN INDICATION
     Dosage: INTRODUCED ONE WEEK BEFORE THE EVENT, ONGOING
     Route: 065
  4. SKENAN [Suspect]
     Active Substance: MORPHINE SULFATE
     Dosage: DOSE REDUCED
     Route: 065
  5. LYRICA [Concomitant]
     Active Substance: PREGABALIN
     Indication: PRODUCT USED FOR UNKNOWN INDICATION
     Dosage: USUAL TREATMENT, ONGOING
     Route: 065
  6. ZOPHREN [Suspect]
     Active Substance: ONDANSETRON
     Indication: PRODUCT USED FOR UNKNOWN INDICATION
     Dosage: AT D1, D2 AND D3
     Route: 065
     Dates: start: 20170630
  7. CORTANCYL [Suspect]
     Active Substance: PREDNISONE
     Indication: PRODUCT USED FOR UNKNOWN INDICATION
     Dosage: INTRODUCED A WEEK BEFORE THE EVENT, ONGOING
     Route: 065
  8. SKENAN [Suspect]
     Active Substance: MORPHINE SULFATE
     Indication: PRODUCT USED FOR UNKNOWN INDICATION
     Dosage: MORNIGN AND EVENING; USUAL TREATMENT
     Route: 065
  9. INNOHEP [Concomitant]
     Active Substance: TINZAPARIN SODIUM
     Indication: PRODUCT USED FOR UNKNOWN INDICATION
     Dosage: USUAL TREATMENT, ONGOING
     Route: 065
  10. BISOPROLOL [Suspect]
     Active Substance: BISOPROLOL
     Indication: PRODUCT USED FOR UNKNOWN INDICATION
     Dosage: INTRODUCED ONE WEEK BEFORE THE EVENT, ONGOING
     Route: 065
  11. CYMBALTA [Concomitant]
     Active Substance: DULOXETINE HYDROCHLORIDE
     Indication: PRODUCT USED FOR UNKNOWN INDICATION
     Dosage: USUAL TREATMENT, ONGOING
     Route: 065
  12. UROMITEXAN 5 G/50 ML, SOLUTION INJECTABLE POUR PERFUSION EN FLACON [Suspect]
     Active Substance: MESNA
     Indication: PRODUCT USED FOR UNKNOWN INDICATION
     Dosage: 3 G/M2, AT D1, D2 AND D3 (EQUIVALENT TO 4.44 G/DAY)
     Route: 065
     Dates: start: 20170630
  13. PARACETAMOL [Concomitant]
     Active Substance: ACETAMINOPHEN
     Indication: PRODUCT USED FOR UNKNOWN INDICATION
     Dosage: USUAL TREATMENT, ONGOING
     Route: 065
  14. MOVICOL [Concomitant]
     Active Substance: POLYETHYLENE GLYCOL 3350\POTASSIUM CHLORIDE\SODIUM BICARBONATE\SODIUM CHLORIDE
     Indication: PRODUCT USED FOR UNKNOWN INDICATION
     Dosage: USUAL TREATMENT, ONGOING
     Route: 065
  15. TAXOL [Concomitant]
     Active Substance: PACLITAXEL
     Indication: PRODUCT USED FOR UNKNOWN INDICATION
     Route: 065
  16. HOLOXAN 2000 MG, POUDRE POUR USAGE PARENT?RAL [Suspect]
     Active Substance: IFOSFAMIDE
     Indication: ANGIOSARCOMA
     Dosage: 3 G/M2, (EQUIVALENT TO 4.44 G/DAY) PERFUSION.
     Route: 042
     Dates: start: 20170630, end: 20170701
  17. METHYLPREDNISOLONE. [Suspect]
     Active Substance: METHYLPREDNISOLONE
     Indication: PREMEDICATION
     Route: 065
     Dates: start: 20170630
  18. UROMITEXAN 5 G/50 ML, SOLUTION INJECTABLE POUR PERFUSION EN FLACON [Suspect]
     Active Substance: MESNA
     Dosage: AT D1 (EQUIVALENT TO 888 MG)
     Route: 065
     Dates: start: 20170630, end: 20170630
  19. XANAX [Suspect]
     Active Substance: ALPRAZOLAM
     Indication: PRODUCT USED FOR UNKNOWN INDICATION
     Dosage: DAILY EVENING;USUAL TREATMENT
     Route: 065
  20. PANTOPRAZOLE [Concomitant]
     Active Substance: PANTOPRAZOLE
     Indication: PRODUCT USED FOR UNKNOWN INDICATION
     Dosage: USUAL TREATMENT, ONGOING
     Route: 065
  21. METEOSPASMYL [Concomitant]
     Active Substance: ALVERINE CITRATE\DIMETHICONE
     Indication: PRODUCT USED FOR UNKNOWN INDICATION
     Dosage: USUAL TREATMENT, ONGOING
     Route: 065

REACTIONS (10)
  - Hyperleukocytosis [Unknown]
  - Hypoalbuminaemia [Unknown]
  - Urinary incontinence [Recovered/Resolved]
  - Vision blurred [Recovered/Resolved]
  - Cerebral disorder [Recovered/Resolved]
  - Dysarthria [Recovered/Resolved]
  - Hyponatraemia [Unknown]
  - Hypotonia [Recovered/Resolved]
  - Encephalopathy [Recovered/Resolved]
  - Fatigue [Not Recovered/Not Resolved]

NARRATIVE: CASE EVENT DATE: 20170630
